FAERS Safety Report 8045890-9 (Version None)
Quarter: 2012Q1

REPORT INFORMATION
  Report Type: 
  Country: None (occurrence: None)
  Receive Date: 20120113
  Receipt Date: 20110927
  Transmission Date: 20120608
  Serious: Yes (Hospitalization, Other)
  Sender: FDA-Public Use
  Company Number: US-GLAXOSMITHKLINE-A0946184A

PATIENT
  Age: 66 Year
  Sex: Female
  Weight: 80.5 kg

DRUGS (21)
  1. ADVAIR DISKUS 100/50 [Suspect]
     Indication: CHRONIC OBSTRUCTIVE PULMONARY DISEASE
     Dosage: 1PUFF TWICE PER DAY
     Route: 055
     Dates: start: 20050928
  2. VITAMIN B-12 [Concomitant]
     Dosage: 250MCG PER DAY
     Route: 048
  3. CYMBALTA [Concomitant]
     Dosage: 60MG PER DAY
     Route: 048
     Dates: start: 20110713
  4. ZALEPLON [Concomitant]
     Dosage: 10MG AT NIGHT
     Route: 048
  5. VENTOLIN HFA [Concomitant]
     Dosage: 2PUFF AS REQUIRED
     Route: 055
     Dates: start: 20110812
  6. VENTOLIN HFA [Concomitant]
  7. NORVASC [Concomitant]
     Dosage: 10MG PER DAY
     Route: 048
     Dates: start: 20101224
  8. AMITIZA [Concomitant]
     Dosage: 24MCG TWICE PER DAY
     Route: 048
     Dates: start: 20110804
  9. OXYGEN [Concomitant]
  10. LYRICA [Concomitant]
     Dosage: 75MG THREE TIMES PER DAY
     Route: 048
     Dates: start: 20110804
  11. ALBUTEROL [Concomitant]
     Dosage: 2PUFF AS REQUIRED
     Route: 055
     Dates: start: 20110331
  12. ZYPREXA [Concomitant]
     Dosage: 2.5MG AT NIGHT
     Route: 048
     Dates: start: 20101224
  13. NEBULIZER [Concomitant]
  14. LORTAB [Concomitant]
     Dosage: 1TAB AS REQUIRED
     Route: 048
     Dates: start: 20080327
  15. LIPITOR [Concomitant]
     Dosage: 10MG AT NIGHT
     Route: 048
     Dates: start: 20110804
  16. HYZAAR [Concomitant]
     Dosage: 1TAB PER DAY
     Route: 048
     Dates: start: 20110929
  17. NITROSTAT [Concomitant]
     Route: 060
     Dates: start: 20110713
  18. FUROSEMIDE [Concomitant]
     Dosage: 20MG PER DAY
     Route: 048
     Dates: start: 20101224
  19. MUCINEX DM [Concomitant]
     Dosage: 1TAB AS REQUIRED
     Route: 048
  20. ANTIVERT [Concomitant]
     Indication: VERTIGO
     Dosage: 25MG AS REQUIRED
     Route: 048
     Dates: start: 20101017
  21. TYLENOL (CAPLET) [Concomitant]
     Dosage: 650MG PER DAY
     Route: 048

REACTIONS (2)
  - TREATMENT NONCOMPLIANCE [None]
  - PNEUMONIA [None]
